FAERS Safety Report 5777362-6 (Version None)
Quarter: 2008Q2

REPORT INFORMATION
  Report Type: 
  Country: None (occurrence: None)
  Receive Date: 20080618
  Receipt Date: 20080617
  Transmission Date: 20081010
  Serious: No
  Sender: FDA-Public Use
  Company Number: PHHY2008BR10087

PATIENT

DRUGS (2)
  1. CATAFLAM [Suspect]
     Indication: THROAT IRRITATION
     Dosage: 12 DRP, QID
     Route: 048
     Dates: start: 20080602, end: 20080603
  2. DIPYRONE [Concomitant]
     Indication: PYREXIA
     Dosage: 12 DRP, QID
     Route: 048
     Dates: start: 20080602

REACTIONS (1)
  - SWELLING FACE [None]
